FAERS Safety Report 25771170 (Version 1)
Quarter: 2025Q3

REPORT INFORMATION
  Report Type: Spontaneous
  Country: US (occurrence: US)
  Receive Date: 20250908
  Receipt Date: 20250908
  Transmission Date: 20251021
  Serious: No
  Sender: DOMPE FARMACEUTICI
  Company Number: US-FARMAPROD-202504-1063

PATIENT
  Age: 74 Year
  Sex: Female

DRUGS (12)
  1. OXERVATE [Suspect]
     Active Substance: CENEGERMIN-BKBJ
     Indication: Neurotrophic keratopathy
     Route: 047
     Dates: start: 20250329, end: 20250522
  2. OXERVATE [Suspect]
     Active Substance: CENEGERMIN-BKBJ
  3. OXERVATE [Suspect]
     Active Substance: CENEGERMIN-BKBJ
  4. OXERVATE [Suspect]
     Active Substance: CENEGERMIN-BKBJ
     Dates: start: 20250523
  5. OXERVATE [Suspect]
     Active Substance: CENEGERMIN-BKBJ
  6. PREDNISOLONE ACETATE [Concomitant]
     Active Substance: PREDNISOLONE ACETATE
  7. GENTEAL TEARS SEVERE [Concomitant]
     Active Substance: HYPROMELLOSE 2910 (4000 MPA.S)
  8. REFRESH PLU [Concomitant]
  9. RESTASIS [Concomitant]
     Active Substance: CYCLOSPORINE
  10. CALCIUM [Concomitant]
     Active Substance: CALCIUM
  11. VITAMINS [Concomitant]
     Active Substance: VITAMINS
  12. LISINOPRIL [Concomitant]
     Active Substance: LISINOPRIL

REACTIONS (9)
  - Eye pain [Unknown]
  - Headache [Not Recovered/Not Resolved]
  - Eye pain [Unknown]
  - Eye irritation [Unknown]
  - Visual impairment [Unknown]
  - Photophobia [Not Recovered/Not Resolved]
  - Condition aggravated [Unknown]
  - Product dose omission issue [Unknown]
  - Illness [Unknown]

NARRATIVE: CASE EVENT DATE: 20250329
